FAERS Safety Report 5729138-3 (Version None)
Quarter: 2008Q2

REPORT INFORMATION
  Report Type: 
  Country: None (occurrence: None)
  Receive Date: 20080506
  Receipt Date: 20080424
  Transmission Date: 20081010
  Serious: Yes (Other)
  Sender: FDA-Public Use
  Company Number: CA-ROCHE-561108

PATIENT
  Age: 39 Year
  Sex: Male
  Weight: 77 kg

DRUGS (1)
  1. ACCUTANE [Suspect]
     Indication: DRUG USE FOR UNKNOWN INDICATION
     Dosage: DURATION 3.5 WEEKS
     Route: 048

REACTIONS (4)
  - DELUSION [None]
  - DEPRESSION [None]
  - DISTURBANCE IN ATTENTION [None]
  - SUICIDE ATTEMPT [None]
